FAERS Safety Report 10870863 (Version 1)
Quarter: 2015Q1

REPORT INFORMATION
  Report Type: Spontaneous
  Country: US (occurrence: US)
  Receive Date: 20150226
  Receipt Date: 20150226
  Transmission Date: 20150721
  Serious: Yes (Hospitalization)
  Sender: FDA-Public Use
  Company Number: US-SA-2015SA008817

PATIENT
  Age: 63 Year
  Sex: Male
  Weight: 97.5 kg

DRUGS (10)
  1. LANTUS SOLOSTAR [Suspect]
     Active Substance: INSULIN GLARGINE
     Indication: TYPE 2 DIABETES MELLITUS
     Dosage: DOSE:20 UNIT(S)
     Route: 065
     Dates: start: 201501, end: 201501
  2. LANTUS SOLOSTAR [Suspect]
     Active Substance: INSULIN GLARGINE
     Indication: TYPE 2 DIABETES MELLITUS
     Dosage: DOSE:25 UNIT(S)
     Route: 065
     Dates: start: 201501, end: 201501
  3. FLEXPEN [Suspect]
     Active Substance: UNSPECIFIED INGREDIENT
     Indication: DIABETES MELLITUS
     Dosage: DOSE: 1-25 UNITS AT BEDTIME
     Route: 065
     Dates: start: 20150123
  4. SOLOSTAR [Concomitant]
     Active Substance: DEVICE
     Indication: TYPE 2 DIABETES MELLITUS
     Dates: start: 201501, end: 201501
  5. VITAMIN D [Concomitant]
     Active Substance: CHOLECALCIFEROL
  6. LANTUS SOLOSTAR [Suspect]
     Active Substance: INSULIN GLARGINE
     Indication: TYPE 2 DIABETES MELLITUS
     Dosage: DOSE:15 UNIT(S)
     Route: 065
     Dates: start: 201501, end: 201501
  7. FLEXPEN [Suspect]
     Active Substance: UNSPECIFIED INGREDIENT
     Indication: DIABETES MELLITUS
     Dosage: DOSE: 1-25 UNITS AT BEDTIME
     Route: 065
     Dates: start: 20141215
  8. SOLOSTAR [Concomitant]
     Active Substance: DEVICE
     Indication: TYPE 2 DIABETES MELLITUS
     Dates: start: 201501, end: 201501
  9. DIABETA [Suspect]
     Active Substance: GLYBURIDE
     Route: 065
  10. SOLOSTAR [Concomitant]
     Active Substance: DEVICE
     Indication: TYPE 2 DIABETES MELLITUS
     Dates: start: 201501, end: 201501

REACTIONS (2)
  - Blood glucose increased [Recovering/Resolving]
  - Blood pressure increased [Recovered/Resolved]

NARRATIVE: CASE EVENT DATE: 201501
